FAERS Safety Report 7681920-1 (Version None)
Quarter: 2011Q3

REPORT INFORMATION
  Report Type: 
  Country: None (occurrence: None)
  Receive Date: 20110815
  Receipt Date: 20110803
  Transmission Date: 20111222
  Serious: Yes (Other)
  Sender: FDA-Public Use
  Company Number: CH-BIOGENIDEC-2010BI030598

PATIENT
  Age: 28 Year
  Sex: Female

DRUGS (3)
  1. VITAMIN TAB [Concomitant]
     Indication: PREGNANCY
  2. ACETAMINOPHEN [Concomitant]
  3. AVONEX [Suspect]
     Indication: PRODUCT USED FOR UNKNOWN INDICATION
     Route: 030
     Dates: start: 20100517, end: 20100801

REACTIONS (3)
  - PRE-ECLAMPSIA [None]
  - HEADACHE [None]
  - ADVERSE EVENT [None]
